FAERS Safety Report 5779799-8 (Version None)
Quarter: 2008Q2

REPORT INFORMATION
  Report Type: 
  Country: None (occurrence: None)
  Receive Date: 20080618
  Receipt Date: 20080609
  Transmission Date: 20081010
  Serious: Yes (Hospitalization)
  Sender: FDA-Public Use
  Company Number: 100#03#2008-03072

PATIENT
  Age: 12 Year
  Sex: Male

DRUGS (5)
  1. ONDANSETRON HCL [Suspect]
     Indication: PROCEDURAL NAUSEA
     Dosage: 4 MG INTRAVENOUS
     Route: 042
     Dates: start: 20080501, end: 20080509
  2. FLUTICASONE PROPIONATE [Concomitant]
  3. ISOFLURANE [Concomitant]
  4. LIGNOCAINE (LIDOCAINE, LIGNOCAINE) [Concomitant]
  5. PROPOFOL [Concomitant]

REACTIONS (2)
  - CHOREOATHETOSIS [None]
  - MYOCLONUS [None]
